FAERS Safety Report 6390396-6 (Version None)
Quarter: 2009Q4

REPORT INFORMATION
  Report Type: 
  Country: None (occurrence: None)
  Receive Date: 20091006
  Receipt Date: 20090925
  Transmission Date: 20100525
  Serious: Yes (Hospitalization)
  Sender: FDA-Public Use
  Company Number: JP-MERCK-0908USA03059

PATIENT
  Age: 78 Year
  Sex: Female
  Weight: 49 kg

DRUGS (14)
  1. PEPCID RPD [Suspect]
     Indication: PROPHYLAXIS AGAINST GASTROINTESTINAL ULCER
     Route: 048
     Dates: start: 20090706
  2. GENINAX [Suspect]
     Indication: NASOPHARYNGITIS
     Route: 048
     Dates: start: 20090701, end: 20090706
  3. PL-GRANULES [Suspect]
     Indication: NASOPHARYNGITIS
     Route: 048
     Dates: start: 20090701, end: 20090706
  4. TRANSAMIN [Suspect]
     Indication: NASOPHARYNGITIS
     Route: 048
     Dates: start: 20090701, end: 20090706
  5. DASEN [Suspect]
     Indication: NASOPHARYNGITIS
     Route: 048
     Dates: start: 20090701, end: 20090706
  6. DEPAS [Suspect]
     Indication: ANXIETY DISORDER
     Route: 048
     Dates: start: 20080101, end: 20090720
  7. MICONAZOLE NITRATE [Suspect]
     Indication: ORAL CANDIDIASIS
     Route: 061
     Dates: start: 20090709, end: 20090720
  8. PREDNISOLONE [Suspect]
     Indication: RASH
     Route: 048
     Dates: start: 20090706, end: 20090712
  9. PREDNISOLONE [Suspect]
     Route: 048
     Dates: start: 20090713, end: 20090715
  10. PREDNISOLONE [Suspect]
     Route: 048
     Dates: start: 20090716, end: 20090721
  11. PREDNISOLONE [Suspect]
     Route: 048
     Dates: start: 20090722, end: 20090724
  12. PREDNISOLONE [Suspect]
     Route: 048
     Dates: start: 20090725, end: 20090815
  13. GLOBULIN, IMMUNE [Suspect]
     Indication: RASH
     Route: 041
     Dates: start: 20090709, end: 20090711
  14. GLOBULIN, IMMUNE [Suspect]
     Route: 041
     Dates: start: 20090722, end: 20090724

REACTIONS (2)
  - HEPATIC FUNCTION ABNORMAL [None]
  - STEVENS-JOHNSON SYNDROME [None]
